FAERS Safety Report 21582339 (Version 1)
Quarter: 2022Q4

REPORT INFORMATION
  Report Type: Spontaneous
  Country: US (occurrence: None)
  Receive Date: 20221108
  Receipt Date: 20221108
  Transmission Date: 20230113
  Serious: No
  Sender: FDA-Public Use
  Company Number: None

PATIENT

DRUGS (1)
  1. CISATRACURIUM BESYLATE [Suspect]
     Active Substance: CISATRACURIUM BESYLATE
     Dosage: OTHER ROUTE : INJECTION;?
     Route: 050

REACTIONS (3)
  - Circumstance or information capable of leading to medication error [None]
  - Product label issue [None]
  - Product label confusion [None]
